FAERS Safety Report 10483294 (Version 1)
Quarter: 2014Q3

REPORT INFORMATION
  Report Type: Spontaneous
  Country: US (occurrence: US)
  Receive Date: 20140930
  Receipt Date: 20140930
  Transmission Date: 20150326
  Serious: Yes (Hospitalization)
  Sender: FDA-Public Use
  Company Number: 2014SP005367

PATIENT
  Age: 83 Year
  Sex: Male

DRUGS (10)
  1. MUCINEX [Concomitant]
     Active Substance: GUAIFENESIN
     Dates: start: 20140905, end: 20140915
  2. VFEND [Concomitant]
     Active Substance: VORICONAZOLE
     Indication: ANTIFUNGAL TREATMENT
     Route: 048
     Dates: start: 20140909, end: 20140909
  3. DIFLUCAN [Concomitant]
     Active Substance: FLUCONAZOLE
     Indication: ANTIFUNGAL TREATMENT
     Route: 042
     Dates: start: 20140910, end: 20140912
  4. VFEND [Concomitant]
     Active Substance: VORICONAZOLE
     Indication: ANTIFUNGAL TREATMENT
     Route: 042
     Dates: start: 20140909, end: 20140909
  5. MYDRIACYL [Concomitant]
     Active Substance: TROPICAMIDE
     Indication: PUPIL DILATION PROCEDURE
     Route: 047
     Dates: start: 20140911
  6. CYTARABINE. [Suspect]
     Active Substance: CYTARABINE
     Route: 058
     Dates: start: 20140825, end: 20140905
  7. MERREM [Concomitant]
     Active Substance: MEROPENEM
     Indication: FEBRILE NEUTROPENIA
     Dates: start: 20140903, end: 20140910
  8. AK-DILATE [Concomitant]
     Indication: PUPIL DILATION PROCEDURE
     Route: 047
     Dates: start: 20140911
  9. LIDODERM [Concomitant]
     Active Substance: LIDOCAINE
     Indication: PAIN
     Route: 062
     Dates: start: 20140907, end: 20140915
  10. DIFLUCAN [Concomitant]
     Active Substance: FLUCONAZOLE
     Indication: ANTIFUNGAL TREATMENT
     Route: 048
     Dates: start: 20140912

REACTIONS (8)
  - Cardiac failure congestive [Not Recovered/Not Resolved]
  - Atrial fibrillation [Not Recovered/Not Resolved]
  - Pleural effusion [Recovering/Resolving]
  - Cyanosis [Recovering/Resolving]
  - Hypertension [Recovering/Resolving]
  - Wheezing [Recovering/Resolving]
  - Systemic candida [Not Recovered/Not Resolved]
  - Hypoxia [Recovering/Resolving]

NARRATIVE: CASE EVENT DATE: 20140907
